FAERS Safety Report 14095430 (Version 2)
Quarter: 2017Q4

REPORT INFORMATION
  Report Type: Report from Study
  Country: US (occurrence: US)
  Receive Date: 20171017
  Receipt Date: 20171201
  Transmission Date: 20180321
  Serious: No
  Sender: FDA-Public Use
  Company Number: US-AMGEN-USASP2017154734

PATIENT
  Age: 53 Year
  Sex: Female
  Weight: 73.7 kg

DRUGS (1)
  1. ENBREL [Suspect]
     Active Substance: ETANERCEPT
     Indication: PSORIASIS
     Dosage: 50 MG, 2 TIMES/WK
     Route: 065
     Dates: start: 20171006, end: 20171031

REACTIONS (10)
  - Wrong technique in product usage process [Unknown]
  - Ear pain [Unknown]
  - Lethargy [Unknown]
  - Feeling abnormal [Unknown]
  - Head discomfort [Unknown]
  - Injection site bruising [Unknown]
  - Injection site pain [Unknown]
  - Headache [Unknown]
  - Eye pain [Unknown]
  - Fatigue [Unknown]

NARRATIVE: CASE EVENT DATE: 201710
